FAERS Safety Report 8193247-2 (Version None)
Quarter: 2012Q1

REPORT INFORMATION
  Report Type: 
  Country: None (occurrence: None)
  Receive Date: 20120308
  Receipt Date: 20120223
  Transmission Date: 20120608
  Serious: Yes (Disabling)
  Sender: FDA-Public Use
  Company Number: GB-MYLANLABS-2012S1004177

PATIENT
  Age: 75 Year
  Sex: Female
  Weight: 69.85 kg

DRUGS (32)
  1. FERROUS SULFATE TAB [Concomitant]
     Dates: start: 20111031, end: 20111128
  2. HYOSCINE BUTYLBROMIDE [Concomitant]
     Dates: start: 20111031, end: 20111114
  3. LANSOPRAZOLE [Concomitant]
     Dates: start: 20111031, end: 20111128
  4. MOVELAT /00479601/ [Concomitant]
     Dates: start: 20111031, end: 20111128
  5. ATORVASTATIN [Concomitant]
     Indication: PRODUCT USED FOR UNKNOWN INDICATION
     Dates: start: 20111207
  6. HYOSCINE BUTYLBROMIDE [Concomitant]
     Dates: start: 20111207, end: 20111221
  7. FERROUS SULFATE TAB [Concomitant]
     Indication: PRODUCT USED FOR UNKNOWN INDICATION
     Dates: start: 20111207
  8. FUROSEMIDE [Concomitant]
     Indication: PRODUCT USED FOR UNKNOWN INDICATION
     Dates: start: 20111130
  9. ACETAMINOPHEN [Concomitant]
     Dates: start: 20120104, end: 20120118
  10. QUININE SULFATE [Concomitant]
     Indication: PRODUCT USED FOR UNKNOWN INDICATION
     Dates: start: 20111223
  11. AMLODIPINE [Concomitant]
     Dates: start: 20111031, end: 20111128
  12. METFORMIN HYDROCHLORIDE [Concomitant]
     Indication: PRODUCT USED FOR UNKNOWN INDICATION
     Dates: start: 20111207, end: 20120104
  13. RAMIPRIL [Concomitant]
     Indication: PRODUCT USED FOR UNKNOWN INDICATION
     Dates: start: 20111223
  14. AMITRIPTYLINE HCL [Concomitant]
     Indication: PRODUCT USED FOR UNKNOWN INDICATION
     Dates: start: 20111207
  15. BUPRENORPHINE [Concomitant]
     Indication: PRODUCT USED FOR UNKNOWN INDICATION
     Dates: start: 20111207
  16. HYOSCINE BUTYLBROMIDE [Concomitant]
     Indication: PRODUCT USED FOR UNKNOWN INDICATION
     Dates: start: 20120201
  17. ACETAMINOPHEN [Concomitant]
     Dates: start: 20111031, end: 20111114
  18. BUPRENORPHINE [Concomitant]
     Dates: start: 20111031, end: 20111128
  19. HYOSCINE BUTYLBROMIDE [Concomitant]
     Dates: start: 20120104, end: 20120118
  20. CLARITHROMYCIN [Suspect]
     Indication: PRODUCT USED FOR UNKNOWN INDICATION
     Dates: start: 20120213
  21. AMITRIPTYLINE HCL [Concomitant]
     Dates: start: 20111031, end: 20111128
  22. AMLODIPINE [Concomitant]
     Indication: PRODUCT USED FOR UNKNOWN INDICATION
     Dates: start: 20111207, end: 20120104
  23. LANSOPRAZOLE [Concomitant]
     Indication: PRODUCT USED FOR UNKNOWN INDICATION
     Dates: start: 20111207
  24. METFORMIN HYDROCHLORIDE [Concomitant]
     Dates: start: 20120111, end: 20120208
  25. MOVELAT /00479601/ [Concomitant]
     Indication: PRODUCT USED FOR UNKNOWN INDICATION
     Dates: start: 20111207
  26. SPIRONOLACTONE [Concomitant]
     Indication: PRODUCT USED FOR UNKNOWN INDICATION
     Dates: start: 20111130
  27. ATORVASTATIN [Concomitant]
     Dates: start: 20111031, end: 20111128
  28. GLIMEPIRIDE [Concomitant]
     Indication: PRODUCT USED FOR UNKNOWN INDICATION
     Dates: start: 20111223, end: 20120122
  29. METFORMIN HYDROCHLORIDE [Concomitant]
     Dates: start: 20111031, end: 20111128
  30. ACETAMINOPHEN [Concomitant]
     Indication: PRODUCT USED FOR UNKNOWN INDICATION
     Dates: start: 20120201
  31. ACETAMINOPHEN [Concomitant]
     Dates: start: 20111207, end: 20111221
  32. QUININE SULFATE [Concomitant]
     Dates: start: 20111031, end: 20111130

REACTIONS (2)
  - HEADACHE [None]
  - MALAISE [None]
